FAERS Safety Report 8330288-6 (Version None)
Quarter: 2012Q2

REPORT INFORMATION
  Report Type: 
  Country: None (occurrence: None)
  Receive Date: 20120502
  Receipt Date: 20120423
  Transmission Date: 20120825
  Serious: Yes (Other)
  Sender: FDA-Public Use
  Company Number: PHEH2012US008572

PATIENT
  Sex: Female

DRUGS (10)
  1. LANTUS [Concomitant]
     Dosage: UNK UKN, UNK
  2. ZOREG [Concomitant]
     Dosage: UNK UKN, UNK
  3. GLUCOPHAGE [Concomitant]
     Dosage: UNK UKN, UNK
  4. ASPIRIN [Concomitant]
     Dosage: UNK UKN, UNK
  5. LIPITOR [Concomitant]
     Dosage: UNK UKN, UNK
  6. NORVASC [Concomitant]
     Dosage: UNK UKN, UNK
  7. EMDOR [Concomitant]
     Dosage: UNK UKN, UNK
  8. DIOVAN [Suspect]
     Dosage: 320 MG, 1 X DAILY
  9. PLAVIX [Concomitant]
  10. XANAX [Concomitant]
     Dosage: 0.05 MG, UNK

REACTIONS (4)
  - BLOOD PRESSURE DIASTOLIC DECREASED [None]
  - NEUROLOGICAL SYMPTOM [None]
  - CEREBROVASCULAR ACCIDENT [None]
  - DEHYDRATION [None]
